FAERS Safety Report 5255352-X (Version None)
Quarter: 2007Q1

REPORT INFORMATION
  Report Type: 
  Country: None (occurrence: None)
  Receive Date: 20070305
  Receipt Date: 20070226
  Transmission Date: 20070707
  Serious: Yes (Death, Life-Threatening, Hospitalization, Other)
  Sender: FDA-Public Use
  Company Number: PHBS2007JP03436

PATIENT
  Age: 41 Year
  Sex: Male

DRUGS (1)
  1. VOLTAREN [Suspect]
     Indication: PYREXIA
     Route: 054
     Dates: start: 20070210

REACTIONS (4)
  - BRAIN STEM HAEMORRHAGE [None]
  - DEHYDRATION [None]
  - PLATELET COUNT DECREASED [None]
  - RHABDOMYOLYSIS [None]
